FAERS Safety Report 11467393 (Version 1)
Quarter: 2015Q3

REPORT INFORMATION
  Report Type: Spontaneous
  Country: US (occurrence: US)
  Receive Date: 20150908
  Receipt Date: 20150908
  Transmission Date: 20151125
  Serious: Yes (Hospitalization, Other)
  Sender: FDA-Public Use
  Company Number: US-ROCHE-1629653

PATIENT
  Age: 67 Year
  Sex: Female
  Weight: 75.59 kg

DRUGS (7)
  1. MIRALAX [Concomitant]
     Active Substance: POLYETHYLENE GLYCOL 3350
  2. IBRANCE [Suspect]
     Active Substance: PALBOCICLIB
     Indication: BREAST CANCER
     Dosage: ONE A DAY BY MOUTH
     Route: 048
     Dates: start: 201505
  3. LETROZOLE. [Concomitant]
     Active Substance: LETROZOLE
     Route: 065
  4. ROCEPHIN [Suspect]
     Active Substance: CEFTRIAXONE SODIUM
     Indication: URINARY TRACT INFECTION
     Route: 065
     Dates: start: 20150810
  5. IBRANCE [Suspect]
     Active Substance: PALBOCICLIB
     Route: 048
     Dates: start: 201507
  6. WARFARIN [Suspect]
     Active Substance: WARFARIN
     Indication: THROMBOSIS
     Dosage: ONCE DAILY BY MOUTH
     Route: 048
  7. WARFARIN [Suspect]
     Active Substance: WARFARIN
     Route: 048

REACTIONS (8)
  - Drug dose omission [Unknown]
  - Diarrhoea [Unknown]
  - Weight decreased [Unknown]
  - Drug ineffective [Unknown]
  - Urinary tract infection [Unknown]
  - Hypotension [Unknown]
  - Pulmonary embolism [Unknown]
  - Thrombosis [Recovered/Resolved]

NARRATIVE: CASE EVENT DATE: 20150510
